FAERS Safety Report 9206286 (Version 1)
Quarter: 2013Q2

REPORT INFORMATION
  Report Type: Spontaneous
  Country: IT (occurrence: IT)
  Receive Date: 20130403
  Receipt Date: 20130403
  Transmission Date: 20140414
  Serious: Yes (Disabling)
  Sender: FDA-Public Use
  Company Number: PHHY2013IT029040

PATIENT
  Age: 88 Year
  Sex: Male

DRUGS (8)
  1. ZOMETA [Suspect]
     Indication: PROSTATE CANCER METASTATIC
     Dosage: 1 DF, MONTHLY
     Route: 042
     Dates: start: 20080501, end: 20091126
  2. BICALUTAMIDE [Concomitant]
     Dosage: UNK
     Dates: start: 2011
  3. TICLOPIDINE [Concomitant]
     Dosage: UNK UKN, UNK
  4. BLOPRESS [Concomitant]
     Dosage: UNK UKN, UNK
  5. CO-EFFERALGAN [Concomitant]
     Dosage: UNK UKN, UNK
  6. SEREUPIN [Concomitant]
     Dosage: UNK UKN, UNK
  7. LYRICA [Concomitant]
     Dosage: UNK UKN, UNK
  8. DECAPEPTYL//TRIPTORELIN ACETATE [Concomitant]
     Dosage: UNK
     Dates: start: 2000

REACTIONS (3)
  - Osteonecrosis of jaw [Unknown]
  - Exposed bone in jaw [Unknown]
  - Osteolysis [Unknown]
